FAERS Safety Report 21701150 (Version 1)
Quarter: 2022Q4

REPORT INFORMATION
  Report Type: Spontaneous
  Country: US (occurrence: None)
  Receive Date: 20221207
  Receipt Date: 20221207
  Transmission Date: 20230112
  Serious: Yes (Hospitalization)
  Sender: FDA-Public Use
  Company Number: None

PATIENT
  Age: 65 Year
  Sex: Female
  Weight: 66.45 kg

DRUGS (6)
  1. HYDROXYUREA [Suspect]
     Active Substance: HYDROXYUREA
     Indication: Myelofibrosis
     Dosage: OTHER FREQUENCY : M,W,F;?
     Route: 048
  2. CARVEDILOL [Concomitant]
     Active Substance: CARVEDILOL
  3. CLONAZEPAM [Concomitant]
     Active Substance: CLONAZEPAM
  4. ELIQUIS [Concomitant]
     Active Substance: APIXABAN
  5. LAMOTRIGINE [Concomitant]
     Active Substance: LAMOTRIGINE
  6. SALINE NASAL [Concomitant]
     Active Substance: SODIUM CHLORIDE

REACTIONS (2)
  - Diarrhoea [None]
  - Intestinal operation [None]
